FAERS Safety Report 10018195 (Version 2)
Quarter: 2014Q1

REPORT INFORMATION
  Report Type: Spontaneous
  Country: US (occurrence: US)
  Receive Date: 20140318
  Receipt Date: 20140318
  Transmission Date: 20141002
  Serious: No
  Sender: FDA-Public Use
  Company Number: US-BRISTOL-MYERS SQUIBB COMPANY-19198142

PATIENT
  Age: 88 Year
  Sex: Male

DRUGS (1)
  1. ERBITUX [Suspect]
     Indication: HEAD AND NECK CANCER
     Dosage: EVERY 8-14 DAYS
     Route: 042
     Dates: start: 20130605

REACTIONS (4)
  - Rash [Recovering/Resolving]
  - Pruritus [Recovered/Resolved]
  - Nail discolouration [Unknown]
  - Weight increased [Unknown]
